FAERS Safety Report 5084367-X (Version None)
Quarter: 2006Q3

REPORT INFORMATION
  Report Type: 
  Country: None (occurrence: None)
  Receive Date: 20060816
  Receipt Date: 20060731
  Transmission Date: 20061208
  Serious: Yes (Other)
  Sender: FDA-Public Use
  Company Number: TRP_0832_2006

PATIENT
  Age: 47 Year
  Sex: Female

DRUGS (2)
  1. RIBASPHERE [Suspect]
     Dosage: DF UNK PO
     Route: 048
  2. PEG-INTRON [Suspect]
     Dosage: DF UNK SC
     Route: 058

REACTIONS (2)
  - BLINDNESS [None]
  - TREMOR [None]
